FAERS Safety Report 22280824 (Version 1)
Quarter: 2023Q2

REPORT INFORMATION
  Report Type: Spontaneous
  Country: US (occurrence: US)
  Receive Date: 20230503
  Receipt Date: 20230503
  Transmission Date: 20230721
  Serious: No
  Sender: FDA-Public Use
  Company Number: US-AMGEN-USASP2023076211

PATIENT
  Sex: Male

DRUGS (6)
  1. OTEZLA [Suspect]
     Active Substance: APREMILAST
     Indication: Psoriatic arthropathy
     Dosage: 30 MILLIGRAM, BID
     Route: 048
  2. MELOXICAM [Concomitant]
     Active Substance: MELOXICAM
  3. TAMSULOSIN HYDROCHLORIDE NISSIN [Concomitant]
  4. CLARITIN [Concomitant]
     Active Substance: LORATADINE
  5. SUMATRIPTAN [Concomitant]
     Active Substance: SUMATRIPTAN
  6. VITAMINS [Concomitant]
     Active Substance: VITAMINS

REACTIONS (1)
  - Product dose omission issue [Unknown]
